FAERS Safety Report 8862857 (Version 1)
Quarter: 2012Q4

REPORT INFORMATION
  Report Type: 
  Country: IT (occurrence: IT)
  Receive Date: 20121026
  Receipt Date: 20121026
  Transmission Date: 20130627
  Serious: Yes (Other)
  Sender: FDA-Public Use
  Company Number: IT-VIIV HEALTHCARE LIMITED-B0840225A

PATIENT
  Age: 42 Year
  Sex: Male

DRUGS (5)
  1. KIVEXA [Suspect]
     Indication: HIV INFECTION
     Dosage: 1TAB Per day
     Dates: start: 20121005, end: 20121011
  2. REYATAZ [Suspect]
     Indication: HIV INFECTION
     Dosage: 300MG Per day
     Route: 048
     Dates: start: 20121005, end: 20121011
  3. NORVIR [Suspect]
     Indication: HIV INFECTION
     Dosage: 100MG Per day
     Route: 048
     Dates: start: 20121005, end: 20121011
  4. METHADONE [Concomitant]
     Indication: DETOXIFICATION
  5. SERENASE [Concomitant]

REACTIONS (1)
  - Jaundice [Recovering/Resolving]
